FAERS Safety Report 10073289 (Version 1)
Quarter: 2014Q2

REPORT INFORMATION
  Report Type: Spontaneous
  Country: GB (occurrence: GB)
  Receive Date: 20140411
  Receipt Date: 20140411
  Transmission Date: 20141212
  Serious: Yes (Hospitalization)
  Sender: FDA-Public Use
  Company Number: GB-GLAXOSMITHKLINE-B0983022A

PATIENT
  Age: 51 Year
  Sex: Female
  Weight: 56.3 kg

DRUGS (1)
  1. PAZOPANIB [Suspect]
     Indication: ENDOMETRIAL SARCOMA
     Dosage: 800MG PER DAY
     Route: 048
     Dates: start: 20130620, end: 20140305

REACTIONS (2)
  - Pneumothorax [Not Recovered/Not Resolved]
  - Pleural effusion [Unknown]
